FAERS Safety Report 10331749 (Version 1)
Quarter: 2014Q3

REPORT INFORMATION
  Report Type: Spontaneous
  Country: HR (occurrence: HR)
  Receive Date: 20140722
  Receipt Date: 20140722
  Transmission Date: 20150326
  Serious: Yes (Other)
  Sender: FDA-Public Use
  Company Number: HR-WATSON-2014-15518

PATIENT
  Age: 48 Year
  Sex: Male

DRUGS (2)
  1. PROPAFENONE (WATSON LABORATORIES) [Suspect]
     Active Substance: PROPAFENONE
     Indication: DIAGNOSTIC PROCEDURE
     Dosage: 140 MG, SINGLE
     Route: 065
  2. PROPAFENONE (WATSON LABORATORIES) [Suspect]
     Active Substance: PROPAFENONE
     Indication: BRUGADA SYNDROME
     Dosage: 70 MG, SINGLE
     Route: 065

REACTIONS (2)
  - Electrocardiogram QRS complex prolonged [Recovered/Resolved]
  - Electrocardiogram ST segment elevation [Recovered/Resolved]
